FAERS Safety Report 7976342-X (Version None)
Quarter: 2011Q4

REPORT INFORMATION
  Report Type: 
  Country: None (occurrence: None)
  Receive Date: 20111213
  Receipt Date: 20111018
  Transmission Date: 20120403
  Serious: No
  Sender: FDA-Public Use
  Company Number: US-AMGEN-USASP2011053888

PATIENT
  Age: 54 Year
  Sex: Female

DRUGS (1)
  1. ENBREL [Suspect]
     Indication: RHEUMATOID ARTHRITIS
     Dosage: 50 MG, QWK
     Dates: start: 20100501

REACTIONS (7)
  - RHINORRHOEA [None]
  - LACRIMATION INCREASED [None]
  - COUGH [None]
  - NASAL CONGESTION [None]
  - OROPHARYNGEAL PAIN [None]
  - DYSPHONIA [None]
  - SNEEZING [None]
